FAERS Safety Report 5755298-4 (Version None)
Quarter: 2008Q2

REPORT INFORMATION
  Report Type: 
  Country: None (occurrence: None)
  Receive Date: 20080602
  Receipt Date: 20080523
  Transmission Date: 20081010
  Serious: Yes (Disabling)
  Sender: FDA-Public Use
  Company Number: GB-AMGEN-US278862

PATIENT
  Sex: Male
  Weight: 51.6 kg

DRUGS (4)
  1. ENBREL [Suspect]
     Indication: ANKYLOSING SPONDYLITIS
     Route: 058
     Dates: start: 20050626, end: 20080220
  2. DIHYDROCODEINE [Concomitant]
     Indication: PAIN
     Route: 048
     Dates: start: 20050816
  3. PHENYLBUTAZONE [Concomitant]
     Indication: ANKYLOSING SPONDYLITIS
     Route: 048
     Dates: start: 19900817
  4. LANSOPRAZOLE [Concomitant]
     Indication: DYSPEPSIA
     Route: 048
     Dates: start: 19960816

REACTIONS (2)
  - CONDITION AGGRAVATED [None]
  - IRITIS [None]
